FAERS Safety Report 6176590-8 (Version None)
Quarter: 2009Q2

REPORT INFORMATION
  Report Type: 
  Country: None (occurrence: None)
  Receive Date: 20090501
  Receipt Date: 20090423
  Transmission Date: 20091009
  Serious: Yes (Hospitalization, Other)
  Sender: FDA-Public Use
  Company Number: US-ELI_LILLY_AND_COMPANY-US200904005403

PATIENT
  Sex: Female
  Weight: 71.202 kg

DRUGS (8)
  1. BYETTA [Suspect]
     Indication: TYPE 2 DIABETES MELLITUS
     Dosage: 5 UG, 2/D
     Route: 058
     Dates: start: 20090301
  2. LASIX [Concomitant]
     Dosage: 20 MG, DAILY (1/D)
     Route: 048
  3. DIOVAN /01319601/ [Concomitant]
     Dosage: 160 MG, DAILY (1/D)
     Route: 048
  4. ASPIRIN [Concomitant]
     Dosage: 81 MG, DAILY (1/D)
     Route: 048
  5. AMLODIPINE [Concomitant]
     Dosage: 5 MG, DAILY (1/D)
     Route: 048
  6. LEXAPRO [Concomitant]
     Indication: DEPRESSION
     Dosage: 5 MG, DAILY (1/D)
     Route: 048
  7. COUMADIN [Concomitant]
     Dosage: 5 MG, UNK
     Route: 048
  8. PRILOSEC [Concomitant]
     Indication: DYSPEPSIA
     Dosage: UNK, AS NEEDED

REACTIONS (9)
  - ABDOMINAL PAIN [None]
  - DIZZINESS [None]
  - FEELING JITTERY [None]
  - INSOMNIA [None]
  - NAUSEA [None]
  - TENSION [None]
  - UMBILICAL HERNIA [None]
  - VISION BLURRED [None]
  - VOMITING [None]
